FAERS Safety Report 10150731 (Version 1)
Quarter: 2014Q2

REPORT INFORMATION
  Report Type: Spontaneous
  Country: US (occurrence: US)
  Receive Date: 20140502
  Receipt Date: 20140502
  Transmission Date: 20141212
  Serious: No
  Sender: FDA-Public Use
  Company Number: US-ASTRAZENECA-2013SE40390

PATIENT
  Sex: Male

DRUGS (1)
  1. PRILOSEC OTC [Suspect]
     Indication: COUGH
     Dosage: ONCE A DAY
     Route: 048

REACTIONS (3)
  - Musculoskeletal pain [Unknown]
  - Bone pain [Unknown]
  - Arthralgia [Unknown]
